FAERS Safety Report 17859989 (Version 2)
Quarter: 2020Q3

REPORT INFORMATION
  Report Type: Spontaneous
  Country: US (occurrence: US)
  Receive Date: 20200604
  Receipt Date: 20200707
  Transmission Date: 20201103
  Serious: Yes (Hospitalization, Other)
  Sender: FDA-Public Use
  Company Number: US-JNJFOC-20200532379

PATIENT
  Sex: Male

DRUGS (5)
  1. RISPERIDONE. [Suspect]
     Active Substance: RISPERIDONE
     Dosage: HIGH DOSE
     Route: 065
     Dates: start: 2012
  2. CITALOPRAM [Suspect]
     Active Substance: CITALOPRAM HYDROBROMIDE
     Indication: SCHIZOAFFECTIVE DISORDER
     Route: 065
  3. RISPERIDONE. [Suspect]
     Active Substance: RISPERIDONE
     Indication: SCHIZOAFFECTIVE DISORDER
     Route: 065
  4. PROLIXIN [Suspect]
     Active Substance: FLUPHENAZINE HYDROCHLORIDE
     Route: 065
  5. PROLIXIN [Suspect]
     Active Substance: FLUPHENAZINE HYDROCHLORIDE
     Indication: SCHIZOAFFECTIVE DISORDER
     Dosage: DOSE UNKNOWN BUT HE WAS STARTED ON TABLETS AND TRANSITIONED TO INJECTABLE
     Route: 065

REACTIONS (4)
  - Liver injury [Unknown]
  - Alcohol abuse [Not Recovered/Not Resolved]
  - Hospitalisation [Recovered/Resolved]
  - Drug ineffective [Unknown]
